FAERS Safety Report 17638530 (Version 1)
Quarter: 2020Q2

REPORT INFORMATION
  Report Type: Spontaneous
  Country: US (occurrence: US)
  Receive Date: 20200407
  Receipt Date: 20200407
  Transmission Date: 20200713
  Serious: No
  Sender: FDA-Public Use
  Company Number: None

PATIENT
  Age: 62 Year
  Sex: Male
  Weight: 63.9 kg

DRUGS (7)
  1. AKYNZEO [Suspect]
     Active Substance: NETUPITANT\PALONOSETRON HYDROCHLORIDE
     Indication: LUNG NEOPLASM MALIGNANT
     Dosage: ?          OTHER FREQUENCY:EVERY 21 DAYS;?
     Route: 042
     Dates: start: 20200304, end: 20200407
  2. DEXAMETHASONE, 4MG, ORAL [Concomitant]
     Dates: end: 20200407
  3. NORCO 5- 325MG, ORAL [Concomitant]
     Dates: end: 20200407
  4. MORPHINE SULFATE 15MG, ORAL [Concomitant]
     Dates: end: 20200407
  5. KEYTRUDA, IV [Concomitant]
     Dates: end: 20200407
  6. DURAGESIC -50, 50MCG/HOUR, TD [Concomitant]
     Dates: end: 20200407
  7. ALIMTA,IV [Concomitant]
     Dates: end: 20200407

REACTIONS (1)
  - Death [None]

NARRATIVE: CASE EVENT DATE: 20200407
